FAERS Safety Report 9853491 (Version 1)
Quarter: 2014Q1

REPORT INFORMATION
  Report Type: Report from Study
  Country: ES (occurrence: ES)
  Receive Date: 20140129
  Receipt Date: 20140129
  Transmission Date: 20141002
  Serious: Yes (Life-Threatening, Hospitalization, Other)
  Sender: FDA-Public Use
  Company Number: ES-ABBVIE-14P-144-1193655-00

PATIENT
  Age: 79 Year
  Sex: Male
  Weight: 84 kg

DRUGS (2)
  1. HUMIRA [Suspect]
     Indication: PSORIASIS
  2. HUMIRA [Suspect]

REACTIONS (3)
  - Colon adenoma [Recovered/Resolved]
  - Atrioventricular block complete [Recovered/Resolved]
  - Rectal haemorrhage [Recovered/Resolved]
